FAERS Safety Report 15121843 (Version 2)
Quarter: 2018Q3

REPORT INFORMATION
  Report Type: Spontaneous
  Country: FR (occurrence: FR)
  Receive Date: 20180709
  Receipt Date: 20180806
  Transmission Date: 20181010
  Serious: Yes (Other)
  Sender: FDA-Public Use
  Company Number: FR-OTSUKA-2018_013649

PATIENT
  Age: 31 Year
  Sex: Male
  Weight: 150 kg

DRUGS (4)
  1. CLOPIXOL [Suspect]
     Active Substance: ZUCLOPENTHIXOL
     Dosage: 1 DF (1 INJECTION EVERY 3 WEEKS OF 3 AMPOULES)
     Route: 065
  2. RISPERDAL [Suspect]
     Active Substance: RISPERIDONE
     Indication: PRODUCT USED FOR UNKNOWN INDICATION
     Dosage: UNK
     Route: 065
  3. CLOPIXOL [Suspect]
     Active Substance: ZUCLOPENTHIXOL
     Indication: SCHIZOPHRENIA
     Dosage: 1 DF, (1 INJECTION EVERY 15 DAYS OF 3 AMPOULES)
     Route: 065
  4. ABILIFY [Suspect]
     Active Substance: ARIPIPRAZOLE
     Indication: PRODUCT USED FOR UNKNOWN INDICATION
     Dosage: UNK
     Route: 065

REACTIONS (5)
  - Schizophrenia [Not Recovered/Not Resolved]
  - Eye disorder [Not Recovered/Not Resolved]
  - Obesity [Not Recovered/Not Resolved]
  - Movement disorder [Not Recovered/Not Resolved]
  - Treatment noncompliance [Unknown]
